FAERS Safety Report 7730737-8 (Version None)
Quarter: 2011Q3

REPORT INFORMATION
  Report Type: 
  Country: None (occurrence: None)
  Receive Date: 20110906
  Receipt Date: 20110817
  Transmission Date: 20111222
  Serious: Yes (Other)
  Sender: FDA-Public Use
  Company Number: NZ-GLAXOSMITHKLINE-B0741110A

PATIENT
  Sex: Female
  Weight: 72 kg

DRUGS (6)
  1. MUCILAX [Concomitant]
     Indication: CONSTIPATION
     Dosage: 1TSP PER DAY
  2. FEXOFENADINE HCL [Concomitant]
     Indication: RHINITIS
  3. CERAZETTE [Concomitant]
     Indication: CONTRACEPTION
  4. CLOTRIMAZOLE [Concomitant]
     Indication: CANDIDIASIS
     Route: 067
     Dates: start: 20110802, end: 20110805
  5. FLIXOTIDE [Suspect]
     Indication: ASTHMA
     Dosage: 125MCG TWICE PER DAY
     Route: 055
     Dates: start: 20110802, end: 20110806
  6. ALBUTEROL [Concomitant]
     Indication: ASTHMA
     Dosage: 100MCG AS REQUIRED
     Route: 055

REACTIONS (1)
  - APHONIA [None]
